FAERS Safety Report 14167178 (Version 2)
Quarter: 2017Q4

REPORT INFORMATION
  Report Type: Spontaneous
  Country: US (occurrence: US)
  Receive Date: 20171107
  Receipt Date: 20171207
  Transmission Date: 20180321
  Serious: No
  Sender: FDA-Public Use
  Company Number: US-PFIZER INC-2017475631

PATIENT
  Age: 5 Year
  Sex: Female
  Weight: 21.32 kg

DRUGS (1)
  1. CHILDRENS ADVIL [Suspect]
     Active Substance: IBUPROFEN
     Indication: PYREXIA
     Dosage: 7.5 ML, UNK
     Dates: start: 20171030, end: 20171030

REACTIONS (5)
  - Mucous stools [Not Recovered/Not Resolved]
  - Poor quality drug administered [Unknown]
  - Abdominal pain upper [Not Recovered/Not Resolved]
  - Abdominal discomfort [Unknown]
  - Product contamination physical [Unknown]

NARRATIVE: CASE EVENT DATE: 20171030
